FAERS Safety Report 21220582 (Version 6)
Quarter: 2025Q2

REPORT INFORMATION
  Report Type: Report from Study
  Country: US (occurrence: US)
  Receive Date: 20220817
  Receipt Date: 20250516
  Transmission Date: 20250717
  Serious: No
  Sender: TAKEDA
  Company Number: US-TAKEDA-2022TUS056630

PATIENT
  Age: 64 Year
  Sex: Female
  Weight: 68 kg

DRUGS (5)
  1. TEDUGLUTIDE [Suspect]
     Active Substance: TEDUGLUTIDE
     Indication: Crohn^s disease
     Dosage: 0.345 MILLILITER, QD
  2. TEDUGLUTIDE [Suspect]
     Active Substance: TEDUGLUTIDE
     Indication: Malabsorption
     Dosage: 3 MILLIGRAM, QD
  3. TEDUGLUTIDE [Suspect]
     Active Substance: TEDUGLUTIDE
     Indication: Vestibular neuronitis
     Dosage: UNK UNK, QD
     Dates: start: 20240118
  4. TEDUGLUTIDE [Suspect]
     Active Substance: TEDUGLUTIDE
     Indication: Diarrhoea
     Dosage: 0.3 MILLIGRAM, QD
  5. OTEZLA [Concomitant]
     Active Substance: APREMILAST

REACTIONS (5)
  - Incorrect dose administered [Unknown]
  - Immunisation reaction [Unknown]
  - Somnolence [Unknown]
  - Product use in unapproved indication [Unknown]
  - Product use issue [Unknown]

NARRATIVE: CASE EVENT DATE: 20240829
